FAERS Safety Report 13870617 (Version 1)
Quarter: 2017Q3

REPORT INFORMATION
  Report Type: Spontaneous
  Country: US (occurrence: US)
  Receive Date: 20170816
  Receipt Date: 20170816
  Transmission Date: 20171127
  Serious: Yes (Other)
  Sender: FDA-Public Use
  Company Number: US-BAXTER-2017BAX029971

PATIENT
  Age: 24 Year
  Sex: Female

DRUGS (7)
  1. METRONIDAZOLE INJECTION, USP [Suspect]
     Active Substance: METRONIDAZOLE
     Indication: STAPHYLOCOCCAL ABSCESS
     Route: 065
  2. METRONIDAZOLE INJECTION, USP [Suspect]
     Active Substance: METRONIDAZOLE
     Indication: EVIDENCE BASED TREATMENT
  3. CIPROFLOXACIN. [Suspect]
     Active Substance: CIPROFLOXACIN
     Indication: EVIDENCE BASED TREATMENT
  4. IBUPROFEN. [Suspect]
     Active Substance: IBUPROFEN
     Indication: PROCEDURAL PAIN
     Dosage: SINGLE DOSE ON HD2, OVERNIGHT
     Route: 065
  5. VANCOMYCIN INJECTION, USP [Suspect]
     Active Substance: VANCOMYCIN
     Indication: EVIDENCE BASED TREATMENT
     Dosage: 15.6 MG/KG/DAY ON HD1 AT 22:30
     Route: 065
  6. VANCOMYCIN INJECTION, USP [Suspect]
     Active Substance: VANCOMYCIN
     Indication: STAPHYLOCOCCAL ABSCESS
     Dosage: 31.2 MG/KG/DAY ON HD2 AT 06:30 AND 14:42 (2 DOSES)
     Route: 065
  7. CIPROFLOXACIN. [Suspect]
     Active Substance: CIPROFLOXACIN
     Indication: STAPHYLOCOCCAL ABSCESS
     Route: 065

REACTIONS (2)
  - Acute kidney injury [Recovered/Resolved]
  - Exposure during pregnancy [Not Recovered/Not Resolved]
